FAERS Safety Report 5026348-8 (Version None)
Quarter: 2006Q2

REPORT INFORMATION
  Report Type: 
  Country: None (occurrence: None)
  Receive Date: 20060615
  Receipt Date: 20060208
  Transmission Date: 20061013
  Serious: Yes (Hospitalization)
  Sender: FDA-Public Use
  Company Number: GB-BRISTOL-MYERS SQUIBB COMPANY-13276092

PATIENT
  Age: 32 Year
  Sex: Male

DRUGS (4)
  1. CISPLATIN [Suspect]
     Indication: GERM CELL CANCER
     Route: 042
     Dates: start: 20051122, end: 20051122
  2. BLEOMYCIN [Suspect]
     Indication: GERM CELL CANCER
     Route: 042
     Dates: start: 20051130, end: 20051130
  3. ETOPOSIDE [Suspect]
     Indication: GERM CELL CANCER
     Route: 042
     Dates: start: 20051122, end: 20051122
  4. DIHYDROCODEINE [Concomitant]

REACTIONS (2)
  - NEUTROPENIA [None]
  - PHARYNGOLARYNGEAL PAIN [None]
